FAERS Safety Report 4268294-3 (Version None)
Quarter: 2004Q1

REPORT INFORMATION
  Report Type: 
  Country: None (occurrence: None)
  Receive Date: 20040108
  Receipt Date: 20031226
  Transmission Date: 20041129
  Serious: Yes (Hospitalization)
  Sender: FDA-Public Use
  Company Number: JP-SHR-03-019104

PATIENT
  Age: 46 Year
  Sex: Male

DRUGS (1)
  1. BETAFERON (INTERFERON BETA - 1B) INJECTION, 250 UG [Suspect]
     Indication: MULTIPLE SCLEROSIS
     Dates: start: 20020101

REACTIONS (5)
  - ERYTHEMA [None]
  - INDURATION [None]
  - LOCALISED SKIN REACTION [None]
  - PAIN [None]
  - SKIN ULCER [None]
